FAERS Safety Report 4458203-6 (Version None)
Quarter: 2004Q3

REPORT INFORMATION
  Report Type: 
  Country: None (occurrence: None)
  Receive Date: 20040922
  Receipt Date: 20040903
  Transmission Date: 20050211
  Serious: Yes (Hospitalization)
  Sender: FDA-Public Use
  Company Number: EWC040940479

PATIENT
  Age: 46 Year
  Sex: Female
  Weight: 164 kg

DRUGS (7)
  1. OLANZAPINE [Suspect]
     Indication: BIPOLAR DISORDER
     Dosage: 10 MG/1 DAY
  2. SEROQUEL [Concomitant]
  3. FLURAZEPAM [Concomitant]
  4. LORAZEPAM [Concomitant]
  5. LITHIUM [Concomitant]
  6. VALPROATE SODIUM [Concomitant]
  7. AKINETON [Concomitant]

REACTIONS (4)
  - DEPRESSED LEVEL OF CONSCIOUSNESS [None]
  - DRUG LEVEL INCREASED [None]
  - PUPILLARY REFLEX IMPAIRED [None]
  - RESPIRATORY FAILURE [None]
